FAERS Safety Report 10290615 (Version 2)
Quarter: 2014Q3

REPORT INFORMATION
  Report Type: Spontaneous
  Country: SE (occurrence: None)
  Receive Date: 20140708
  Receipt Date: 20140716
  Transmission Date: 20150326
  Serious: Yes (Hospitalization)
  Sender: FDA-Public Use
  Company Number: SE-20140007

PATIENT
  Age: 76 Year
  Sex: Male

DRUGS (2)
  1. DOTAREM [Suspect]
     Active Substance: GADOTERATE MEGLUMINE
     Indication: NUCLEAR MAGNETIC RESONANCE IMAGING
     Dosage: 16 ML (16 ML, 1 IN1 D), INRAVENOUS (NOT OTHERWISE SPECIFIED)?
     Route: 042
     Dates: start: 20090323, end: 20090323
  2. DOTAREM [Suspect]
     Active Substance: GADOTERATE MEGLUMINE
     Dosage: 16 ML (16 ML, 1 IN1 D), INRAVENOUS (NOT OTHERWISE SPECIFIED)?
     Route: 042
     Dates: start: 20090323, end: 20090323

REACTIONS (1)
  - Nephropathy toxic [None]

NARRATIVE: CASE EVENT DATE: 20090324
